FAERS Safety Report 24907718 (Version 2)
Quarter: 2025Q1

REPORT INFORMATION
  Report Type: Spontaneous
  Country: SK (occurrence: SK)
  Receive Date: 20250131
  Receipt Date: 20250211
  Transmission Date: 20250408
  Serious: Yes (Other)
  Sender: AMGEN
  Company Number: SK-SANDOZ-SDZ2025SK003139

PATIENT
  Age: 67 Year
  Sex: Female

DRUGS (4)
  1. DENOSUMAB [Suspect]
     Active Substance: DENOSUMAB
     Indication: Product used for unknown indication
     Route: 065
     Dates: start: 202206
  2. LETROZOLE [Suspect]
     Active Substance: LETROZOLE
     Indication: Product used for unknown indication
     Route: 065
     Dates: start: 202206
  3. PALBOCICLIB [Suspect]
     Active Substance: PALBOCICLIB
     Indication: Thrombosis
     Dosage: 125 MG, QD(21 CONSECUTIVE DAYS WITH A SUBSEQUENT PAUSE)
     Route: 065
     Dates: start: 202208
  4. PALBOCICLIB [Suspect]
     Active Substance: PALBOCICLIB
     Dosage: 100 MG, QD
     Route: 065
     Dates: start: 202211

REACTIONS (1)
  - Neutropenia [Unknown]
